FAERS Safety Report 7636325-6 (Version None)
Quarter: 2011Q3

REPORT INFORMATION
  Report Type: 
  Country: None (occurrence: None)
  Receive Date: 20110726
  Receipt Date: 20110721
  Transmission Date: 20111222
  Serious: Yes (Other)
  Sender: FDA-Public Use
  Company Number: US-GLAXOSMITHKLINE-A0922082A

PATIENT
  Age: 11 Year
  Sex: Male

DRUGS (1)
  1. VENTOLIN HFA [Suspect]
     Indication: ASTHMA
     Dosage: 90MCG UNKNOWN
     Route: 055

REACTIONS (2)
  - ASTHMA EXERCISE INDUCED [None]
  - PRODUCT QUALITY ISSUE [None]
